FAERS Safety Report 16477408 (Version 1)
Quarter: 2019Q2

REPORT INFORMATION
  Report Type: Spontaneous
  Country: AU (occurrence: AU)
  Receive Date: 20190626
  Receipt Date: 20190626
  Transmission Date: 20190711
  Serious: Yes (Other)
  Sender: FDA-Public Use
  Company Number: PHHY2019AU143560

PATIENT
  Age: 85 Year
  Sex: Female

DRUGS (2)
  1. KISQALI [Suspect]
     Active Substance: RIBOCICLIB
     Indication: BREAST CANCER
     Dosage: 400 MG, QD (3 WEEKS ON/ ONE WEEK OFF)
     Route: 065
  2. KISQALI [Suspect]
     Active Substance: RIBOCICLIB
     Dosage: 200 MG, UNK (21 DAYS ON 14 DAYS OFF)
     Route: 065
     Dates: start: 20190501

REACTIONS (6)
  - Fatigue [Recovering/Resolving]
  - Metastases to bone [Unknown]
  - Nasopharyngitis [Unknown]
  - Osteopenia [Unknown]
  - Metastases to lung [Unknown]
  - Neutropenia [Unknown]
